FAERS Safety Report 15692986 (Version 1)
Quarter: 2018Q4

REPORT INFORMATION
  Report Type: Spontaneous
  Country: US (occurrence: US)
  Receive Date: 20181206
  Receipt Date: 20181206
  Transmission Date: 20190205
  Serious: Yes (Other)
  Sender: FDA-Public Use
  Company Number: US-TEVA-2018-US-983317

PATIENT
  Age: 54 Year
  Sex: Male

DRUGS (2)
  1. CISPLATIN. [Suspect]
     Active Substance: CISPLATIN
     Indication: METASTATIC SALIVARY GLAND CANCER
     Dosage: 5 CYCLES WITH DOCETAXEL AND ONE MONOTHERAPY CYCLE
     Route: 065
  2. DOCETAXEL. [Suspect]
     Active Substance: DOCETAXEL
     Indication: METASTATIC SALIVARY GLAND CANCER
     Dosage: RECEIVED 5 CYCLES
     Route: 065

REACTIONS (1)
  - Neuropathy peripheral [Unknown]
